FAERS Safety Report 5007245-0 (Version None)
Quarter: 2006Q2

REPORT INFORMATION
  Report Type: 
  Country: None (occurrence: None)
  Receive Date: 20060517
  Receipt Date: 20060428
  Transmission Date: 20061013
  Serious: Yes (Hospitalization)
  Sender: FDA-Public Use
  Company Number: US200605000134

PATIENT
  Sex: Female

DRUGS (2)
  1. FORTEO [Suspect]
  2. FORTEO PEN (FORTEO PEN) [Concomitant]

REACTIONS (4)
  - BLOOD DISORDER [None]
  - CYSTITIS [None]
  - NOSOCOMIAL INFECTION [None]
  - URINARY TRACT INFECTION [None]
